FAERS Safety Report 7104957-X (Version None)
Quarter: 2010Q4

REPORT INFORMATION
  Report Type: 
  Country: None (occurrence: None)
  Receive Date: 20101116
  Receipt Date: 20101103
  Transmission Date: 20110411
  Serious: Yes (Hospitalization)
  Sender: FDA-Public Use
  Company Number: PHFR2010GB03466

PATIENT
  Sex: Female

DRUGS (8)
  1. CLOZARIL [Suspect]
     Indication: SCHIZOPHRENIA
     Dosage: 550 MG/DAY
     Route: 048
     Dates: start: 20000816
  2. ARIPIPRAZOLE [Concomitant]
     Dosage: 10 MG, UNK
     Dates: start: 20100705
  3. PROCYCLIDINE HYDROCHLORIDE 2MG TAB [Concomitant]
     Dosage: 15 MG, UNK
  4. CLONAZEPAM [Concomitant]
     Dosage: 1 MG, UNK
  5. OMEPRAZOLE [Concomitant]
     Dosage: 20 MG, UNK
  6. EZETIMIBE W/SIMVASTATIN [Concomitant]
     Dosage: 10 MG AND 40 MG
  7. METFORMIN HCL [Concomitant]
  8. GLICLAZIDE [Concomitant]
     Dosage: 150 MG, UNK

REACTIONS (4)
  - HAEMOGLOBIN DECREASED [None]
  - HYSTERECTOMY [None]
  - MICROCYTIC ANAEMIA [None]
  - POST PROCEDURAL HAEMORRHAGE [None]
